FAERS Safety Report 4741446-1 (Version None)
Quarter: 2005Q3

REPORT INFORMATION
  Report Type: 
  Country: None (occurrence: None)
  Receive Date: 20050808
  Receipt Date: 20050728
  Transmission Date: 20060218
  Serious: Yes (Hospitalization, Other)
  Sender: FDA-Public Use
  Company Number: 2005087496

PATIENT
  Age: 75 Year
  Sex: Female
  Weight: 59.8748 kg

DRUGS (6)
  1. BEXTRA [Suspect]
     Indication: ARTHRITIS
     Dosage: 10 MG (10 MG, 1 IN 1 D), ORAL
     Route: 048
     Dates: start: 20020101
  2. BEXTRA [Suspect]
     Indication: BACK PAIN
     Dosage: 10 MG (10 MG, 1 IN 1 D), ORAL
     Route: 048
     Dates: start: 20020101
  3. CELEBREX [Suspect]
     Indication: ARTHRITIS
     Dosage: 200 MG (200 MG, 1 IN 1 D), ORAL
     Route: 048
     Dates: start: 20011203, end: 20020101
  4. CELEBREX [Suspect]
     Indication: BACK PAIN
     Dosage: 200 MG (200 MG, 1 IN 1 D), ORAL
     Route: 048
     Dates: start: 20011203, end: 20020101
  5. LOPRESSOR [Concomitant]
  6. VITAMIN B12 [Concomitant]

REACTIONS (6)
  - BACK PAIN [None]
  - CONDITION AGGRAVATED [None]
  - INFECTION [None]
  - RASH [None]
  - SCAR [None]
  - STOMACH DISCOMFORT [None]
